FAERS Safety Report 5425086-7 (Version None)
Quarter: 2007Q3

REPORT INFORMATION
  Report Type: 
  Country: None (occurrence: None)
  Receive Date: 20070824
  Receipt Date: 20070820
  Transmission Date: 20080115
  Serious: Yes (Death)
  Sender: FDA-Public Use
  Company Number: TR-ASTRAZENECA-2007SE04198

PATIENT
  Age: 40 Year
  Sex: Female

DRUGS (7)
  1. SEROQUEL [Suspect]
     Indication: SCHIZOPHRENIA
     Route: 048
     Dates: start: 20060401
  2. SEROQUEL [Suspect]
     Route: 048
     Dates: start: 20060601
  3. SEROQUEL [Suspect]
     Dosage: 450+600 MG/DAY
     Route: 048
     Dates: start: 20070101
  4. SEROQUEL [Suspect]
     Route: 048
     Dates: start: 20070201
  5. NORODOL [Suspect]
     Indication: SCHIZOPHRENIA
     Route: 048
     Dates: start: 20070201
  6. FLUVOKSAMINE [Concomitant]
     Indication: OBSESSIVE-COMPULSIVE DISORDER
     Route: 048
     Dates: start: 20060701
  7. HALOPERIDOLE [Concomitant]
     Indication: SCHIZOPHRENIA
     Route: 048
     Dates: start: 20070201

REACTIONS (1)
  - SUDDEN DEATH [None]
